FAERS Safety Report 8267791-3 (Version None)
Quarter: 2012Q2

REPORT INFORMATION
  Report Type: 
  Country: None (occurrence: None)
  Receive Date: 20120409
  Receipt Date: 20120404
  Transmission Date: 20120825
  Serious: Yes (Other)
  Sender: FDA-Public Use
  Company Number: JP-B.I. PHARMACEUTICALS,INC./RIDGEFIELD-2012-BP-06387NB

PATIENT
  Age: 60 Year
  Sex: Male
  Weight: 48 kg

DRUGS (8)
  1. PRADAXA [Suspect]
     Indication: PROPHYLAXIS
     Dosage: 220 MG
     Route: 048
     Dates: end: 20120223
  2. MAGMITT [Suspect]
     Indication: CONSTIPATION
     Dosage: 660 MG
     Route: 048
     Dates: start: 20120210
  3. LANSOPRAZOLE [Concomitant]
     Dosage: 15 MG
     Route: 065
     Dates: start: 20120223
  4. KALLIKREIN [Concomitant]
     Dosage: 30 MG
  5. FERROUS SULFATE TAB [Suspect]
     Indication: IRON DEFICIENCY ANAEMIA
     Dosage: 210 MG
     Route: 048
     Dates: start: 20120208, end: 20120301
  6. ZOLPIDEM [Concomitant]
     Dosage: 10 MG
  7. ADAPTINOL [Concomitant]
     Dosage: 15 MG
  8. TAMSULOSIN HCL [Concomitant]
     Dosage: 0.2 MG

REACTIONS (3)
  - OESOPHAGEAL ULCER [None]
  - CHEST DISCOMFORT [None]
  - OCCULT BLOOD POSITIVE [None]
